FAERS Safety Report 5762500-1 (Version None)
Quarter: 2008Q2

REPORT INFORMATION
  Report Type: 
  Country: None (occurrence: None)
  Receive Date: 20080609
  Receipt Date: 20080529
  Transmission Date: 20081010
  Serious: Yes (Other)
  Sender: FDA-Public Use
  Company Number: A0727902A

PATIENT
  Age: 63 Year
  Sex: Female
  Weight: 74.5 kg

DRUGS (10)
  1. VERAMYST [Suspect]
     Route: 045
     Dates: start: 20070801, end: 20080507
  2. NASONEX [Suspect]
     Route: 045
     Dates: start: 20070118, end: 20070718
  3. ESTRADIOL [Concomitant]
     Indication: HORMONE REPLACEMENT THERAPY
     Route: 048
     Dates: start: 20070118
  4. ZOMIG [Concomitant]
     Indication: MIGRAINE
     Dosage: 10MG AS REQUIRED
     Route: 048
  5. ZYRTEC [Concomitant]
     Indication: MULTIPLE ALLERGIES
     Route: 048
  6. PAXIL [Concomitant]
     Indication: ANXIETY
     Route: 048
  7. LIPITOR [Concomitant]
     Dosage: 40MG PER DAY
     Route: 048
  8. ACTONEL [Concomitant]
     Indication: OSTEOPENIA
     Route: 048
  9. SINGULAIR [Concomitant]
     Indication: MULTIPLE ALLERGIES
     Dosage: 10MG PER DAY
     Route: 048
  10. LISINOPRIL AND HYDROCHLOROTHIAZIDE [Concomitant]
     Indication: HYPERTENSION
     Route: 048

REACTIONS (1)
  - NASAL SEPTUM PERFORATION [None]
